FAERS Safety Report 12586401 (Version 1)
Quarter: 2016Q3

REPORT INFORMATION
  Report Type: Spontaneous
  Country: US (occurrence: US)
  Receive Date: 20160725
  Receipt Date: 20160725
  Transmission Date: 20161109
  Serious: No
  Sender: FDA-Public Use
  Company Number: US-BAYER-2016-138445

PATIENT
  Age: 73 Year
  Sex: Female
  Weight: 70.3 kg

DRUGS (7)
  1. CARVEDILOL. [Concomitant]
     Active Substance: CARVEDILOL
  2. GUAIFENESIN. [Concomitant]
     Active Substance: GUAIFENESIN
  3. SIMVASTATIN. [Concomitant]
     Active Substance: SIMVASTATIN
  4. BUPROPION. [Concomitant]
     Active Substance: BUPROPION
  5. LORAZEPAM. [Concomitant]
     Active Substance: LORAZEPAM
  6. MIRALAX [Suspect]
     Active Substance: POLYETHYLENE GLYCOL 3350
     Indication: COLONOSCOPY
     Dosage: EVERY 15 MINUTES, 238 GRAMS MIXED WITH 64 OUNCES OF LIQUID
     Route: 048
  7. ANADROL [Concomitant]
     Active Substance: OXYMETHOLONE

REACTIONS (4)
  - Off label use [None]
  - Expired product administered [None]
  - Product use issue [None]
  - Product use issue [None]

NARRATIVE: CASE EVENT DATE: 20160713
